FAERS Safety Report 9540112 (Version 2)
Quarter: 2013Q3

REPORT INFORMATION
  Report Type: Spontaneous
  Country: SE (occurrence: SE)
  Receive Date: 20130920
  Receipt Date: 20130920
  Transmission Date: 20140515
  Serious: Yes (Hospitalization)
  Sender: FDA-Public Use
  Company Number: SE-JNJFOC-20130905167

PATIENT
  Age: 67 Year
  Sex: Male

DRUGS (3)
  1. REMICADE [Suspect]
     Indication: COLITIS ULCERATIVE
     Dosage: ABOUT 5 MG/KG, WEEK 2
     Route: 042
     Dates: start: 201306
  2. REMICADE [Suspect]
     Indication: COLITIS ULCERATIVE
     Dosage: ABOUT 5 MG/KG
     Route: 042
     Dates: end: 20130617
  3. REMICADE [Suspect]
     Indication: COLITIS ULCERATIVE
     Dosage: ABOUT 5 MG/KG, WEEK 0
     Route: 042
     Dates: start: 201305

REACTIONS (2)
  - Interstitial lung disease [Recovering/Resolving]
  - Pulmonary embolism [Recovering/Resolving]
